FAERS Safety Report 6496975-X (Version None)
Quarter: 2009Q4

REPORT INFORMATION
  Report Type: 
  Country: None (occurrence: None)
  Receive Date: 20091215
  Receipt Date: 20081118
  Transmission Date: 20100525
  Serious: No
  Sender: FDA-Public Use
  Company Number: A0757232A

PATIENT
  Age: 72 Year
  Sex: Male

DRUGS (4)
  1. AVODART [Suspect]
     Dosage: .5MG PER DAY
     Route: 048
  2. ATENOLOL [Concomitant]
  3. LISINOPRIL [Concomitant]
  4. CRESTOR [Concomitant]

REACTIONS (1)
  - DIARRHOEA [None]
